FAERS Safety Report 6994490-8 (Version None)
Quarter: 2010Q3

REPORT INFORMATION
  Report Type: 
  Country: None (occurrence: None)
  Receive Date: 20100917
  Receipt Date: 20100909
  Transmission Date: 20110219
  Serious: Yes (Other)
  Sender: FDA-Public Use
  Company Number: US-JNJFOC-20091102326

PATIENT
  Sex: Female

DRUGS (2)
  1. LEVAQUIN [Suspect]
     Indication: PNEUMONIA
     Route: 048
  2. CIPRO [Suspect]
     Indication: PRODUCT USED FOR UNKNOWN INDICATION
     Route: 065

REACTIONS (14)
  - AMNESIA [None]
  - ANXIETY [None]
  - ASTHENIA [None]
  - BLISTER [None]
  - DEPRESSION [None]
  - DISTURBANCE IN ATTENTION [None]
  - IMMOBILE [None]
  - MUSCLE SPASMS [None]
  - MUSCLE TWITCHING [None]
  - NERVOUS SYSTEM DISORDER [None]
  - NEUROPATHY PERIPHERAL [None]
  - SHOCK [None]
  - TENDON DISORDER [None]
  - TENDONITIS [None]
